FAERS Safety Report 23455961 (Version 6)
Quarter: 2024Q4

REPORT INFORMATION
  Report Type: Report from Study
  Country: CA (occurrence: CA)
  Receive Date: 20240130
  Receipt Date: 20241010
  Transmission Date: 20250115
  Serious: Yes (Other)
  Sender: TAKEDA
  Company Number: CA-TAKEDA-2024TUS007391

PATIENT
  Age: 58 Year
  Sex: Female

DRUGS (2)
  1. VEDOLIZUMAB [Suspect]
     Active Substance: VEDOLIZUMAB
     Indication: Colitis ulcerative
     Dosage: 300 MILLIGRAM
     Route: 042
     Dates: start: 20231017
  2. VEDOLIZUMAB [Suspect]
     Active Substance: VEDOLIZUMAB
     Dosage: 300 MILLIGRAM, Q4WEEKS
     Route: 042
     Dates: start: 20240612

REACTIONS (3)
  - Haematochezia [Unknown]
  - Off label use [Unknown]
  - Frequent bowel movements [Unknown]

NARRATIVE: CASE EVENT DATE: 20240612
